FAERS Safety Report 10557833 (Version 2)
Quarter: 2016Q3

REPORT INFORMATION
  Report Type: Spontaneous
  Country: CH (occurrence: CH)
  Receive Date: 20141031
  Receipt Date: 20160817
  Transmission Date: 20161109
  Serious: Yes (Hospitalization)
  Sender: FDA-Public Use
  Company Number: CH-TEVA-517343ISR

PATIENT
  Age: 67 Year
  Sex: Male
  Weight: 90 kg

DRUGS (4)
  1. ALFUZOSINE [Concomitant]
     Active Substance: ALFUZOSIN HYDROCHLORIDE
     Indication: BENIGN PROSTATIC HYPERPLASIA
     Dosage: 10 MILLIGRAM DAILY;
     Route: 048
  2. NOPIL FORTE [Suspect]
     Active Substance: SULFAMETHOXAZOLE\TRIMETHOPRIM
     Indication: BACTERIAL PROSTATITIS
     Dosage: 2 DOSAGE FORMS DAILY; 1 DF = 800MG SULFAMETHOXAZOLE + 160MG TRIMETHOPRIM
     Route: 048
     Dates: start: 20140910, end: 20140930
  3. ALLOPUR [Suspect]
     Active Substance: ALLOPURINOL
     Indication: GOUT
     Dosage: 150 MILLIGRAM DAILY;
     Route: 048
     Dates: end: 20141008
  4. OLFEN-75 RETARD DEPOTABS [Suspect]
     Active Substance: DICLOFENAC SODIUM
     Indication: BACK PAIN
     Dosage: LONG TERM
     Route: 048

REACTIONS (7)
  - Pyrexia [Recovered/Resolved]
  - Fatigue [Recovered/Resolved]
  - Leukopenia [Recovered/Resolved]
  - Skin bacterial infection [Recovering/Resolving]
  - Oral candidiasis [Recovered/Resolved]
  - Oral herpes [Recovering/Resolving]
  - Agranulocytosis [Recovered/Resolved]

NARRATIVE: CASE EVENT DATE: 20141003
